FAERS Safety Report 9596439 (Version 2)
Quarter: 2013Q4

REPORT INFORMATION
  Report Type: Report from Study
  Country: US (occurrence: US)
  Receive Date: 20131004
  Receipt Date: 20131004
  Transmission Date: 20140711
  Serious: Yes (Hospitalization, Other)
  Sender: FDA-Public Use
  Company Number: US-TAKEDA-TPA2013A06319

PATIENT
  Age: 67 Year
  Sex: Female
  Weight: 89.3 kg

DRUGS (38)
  1. BLINDED ALLOPURINOL [Suspect]
     Indication: HYPERURICAEMIA
     Dosage: UNK, QD
     Route: 048
     Dates: start: 20110223
  2. BLINDED FEBUXOSTAT [Suspect]
     Indication: HYPERURICAEMIA
     Dosage: UNK, QD
     Route: 048
     Dates: start: 20110223
  3. NEXIUM [Concomitant]
     Indication: GASTROOESOPHAGEAL REFLUX DISEASE
     Dosage: 40MG, QAM
     Route: 048
     Dates: start: 2009, end: 20130702
  4. NEXIUM [Concomitant]
     Dosage: 40 MG, TID
     Route: 048
     Dates: start: 20120730
  5. VITAMIN D [Concomitant]
     Indication: VITAMIN D DEFICIENCY
     Dosage: 2000 IU, QAM
     Route: 048
     Dates: start: 2008
  6. DOXAZOSIN [Concomitant]
     Indication: HYPERTENSION
     Dosage: 4 MG, QAM
     Route: 048
     Dates: start: 201004
  7. DOXAZOSIN [Concomitant]
     Dosage: 6 MG, QHS
     Route: 048
     Dates: start: 201004
  8. ZYRTEC [Concomitant]
     Indication: SEASONAL ALLERGY
     Dosage: 10 MG, QAM
     Route: 048
     Dates: start: 2000
  9. TYLENOL PM [Concomitant]
     Indication: SLEEP DISORDER
     Dosage: 1000 MG,QHS
     Route: 048
     Dates: start: 2008
  10. ZETIA [Concomitant]
     Indication: HYPERLIPIDAEMIA
     Dosage: 10 MG, QHS
     Route: 048
     Dates: start: 2008
  11. ASPIRIN [Concomitant]
     Indication: CARDIOVASCULAR EVENT PROPHYLAXIS
     Dosage: 81 MG QHS
     Route: 048
     Dates: start: 2005
  12. COQ10 [Concomitant]
     Indication: MEDICAL DIET
     Dosage: 150 MG, QD
     Route: 048
     Dates: start: 2000
  13. METOPROLOL [Concomitant]
     Indication: HYPERTENSION
     Dosage: 100 MG, QD
     Route: 048
     Dates: start: 2005
  14. HYDRALAZINE [Concomitant]
     Indication: HYPERTENSION
     Dosage: 100 MG, TID
     Route: 048
     Dates: start: 200806
  15. HYDRALAZINE [Concomitant]
     Dosage: UNK
  16. NOVOLOG INSULIN [Concomitant]
     Indication: TYPE 1 DIABETES MELLITUS
     Dosage: 1 IU, PRN
     Route: 058
     Dates: start: 2005
  17. PROCRIT [Concomitant]
     Indication: ANAEMIA
     Dosage: 1 INJECTION, PRN
     Route: 058
     Dates: start: 2008
  18. NEURONTIN [Concomitant]
     Indication: PERIPHERAL ARTERIAL OCCLUSIVE DISEASE
     Dosage: 900 MG, QD
     Route: 048
     Dates: start: 20111107, end: 20130703
  19. ESTRACE CREAM [Concomitant]
     Indication: MICTURITION URGENCY
     Dosage: 1 APPLICATION QD
     Route: 067
     Dates: start: 20110915
  20. FENOFIBRATE [Concomitant]
     Indication: HYPERTRIGLYCERIDAEMIA
     Dosage: 54 MG, QD
     Route: 048
     Dates: start: 20120126
  21. MAGNESIUM [Concomitant]
     Indication: HYPOMAGNESAEMIA
     Dosage: 400 MG, TID
     Route: 048
     Dates: start: 20120821, end: 20130701
  22. MAGNESIUM [Concomitant]
     Dosage: UNK
  23. FUROSEMIDE [Concomitant]
     Indication: OEDEMA
     Dosage: 40 MG, QD
     Route: 048
     Dates: start: 20130226, end: 20130701
  24. FUROSEMIDE [Concomitant]
     Dosage: 20MG, HS
     Route: 048
     Dates: start: 20130226, end: 20130701
  25. CALCIUM/VITAMIN D3 [Concomitant]
     Indication: SUPPLEMENTATION THERAPY
     Dosage: 500/125 MG, QD
     Route: 048
     Dates: start: 2005
  26. CLOBETASOL .05% [Concomitant]
     Indication: LICHEN SCLEROSUS
     Dosage: 1 APPLICATION, BID
     Route: 067
     Dates: start: 20130226
  27. ISOSORBIDE [Concomitant]
     Indication: HYPERTENSION
     Dosage: 30MG, QD PRN
     Route: 048
     Dates: start: 20130107, end: 20130529
  28. LEVOTHYROXINE [Concomitant]
     Indication: HYPOTHYROIDISM
     Dosage: 125 MCG, QD PRN
     Route: 048
     Dates: start: 20130227
  29. OXYTBUTYNIN [Concomitant]
     Indication: MICTURITION URGENCY
     Dosage: 10 MG, BID
     Route: 048
     Dates: start: 20130226
  30. IMDUR [Concomitant]
     Indication: HYPERTENSION
     Dosage: 60 MG, QD
     Route: 048
     Dates: start: 20130530, end: 20130708
  31. VERSED [Concomitant]
     Indication: SEDATION
     Dosage: 1 MG, 5 TIMES
     Route: 042
     Dates: start: 20130606, end: 20130606
  32. FENTANYL [Concomitant]
     Indication: SEDATION
     Dosage: 50 MG, 3 TIMES
     Route: 042
     Dates: start: 20130606, end: 20130606
  33. ADENOSINE DRIP [Concomitant]
     Indication: ANGIOGRAM
     Dosage: 140 MCG PER KG PER MINUTE, 2 MINUTE
     Route: 042
     Dates: start: 20130606, end: 20130606
  34. BENADRYL [Concomitant]
     Indication: MULTIPLE ALLERGIES
     Dosage: 25 MG, 2 TIMES
     Route: 042
     Dates: start: 20130606, end: 20130606
  35. PRASUGREL [Concomitant]
     Indication: ANTICOAGULANT THERAPY
     Dosage: 60MG ONCE
     Route: 048
     Dates: start: 20130606, end: 20130606
  36. HEPARIN [Concomitant]
     Indication: ANTICOAGULANT THERAPY
     Dosage: 8500 UNITS ONCE
     Route: 042
     Dates: start: 20130606, end: 20130606
  37. PLAVIX [Concomitant]
     Indication: ANTICOAGULANT THERAPY
     Dosage: 75 MG, QD
     Route: 048
     Dates: start: 20130607
  38. NITROGLYCERIN [Concomitant]
     Indication: CARDIOVASCULAR EVENT PROPHYLAXIS
     Dosage: 0.4 MG MG, PRN Q5 MINUTES 3 DOSES
     Route: 060
     Dates: start: 20130607

REACTIONS (2)
  - Coronary artery stenosis [Not Recovered/Not Resolved]
  - Acute respiratory failure [Not Recovered/Not Resolved]
